FAERS Safety Report 8209626-0 (Version None)
Quarter: 2012Q1

REPORT INFORMATION
  Report Type: 
  Country: None (occurrence: None)
  Receive Date: 20120314
  Receipt Date: 20120308
  Transmission Date: 20120608
  Serious: Yes (Life-Threatening, Hospitalization)
  Sender: FDA-Public Use
  Company Number: CA-ASTRAZENECA-2011SE68747

PATIENT
  Age: 53 Year
  Sex: Female
  Weight: 117.9 kg

DRUGS (4)
  1. NEXIUM [Suspect]
     Indication: ABDOMINAL DISCOMFORT
     Route: 048
     Dates: start: 20090101
  2. OXYCONTIN [Concomitant]
     Route: 065
  3. TOPAMAX [Concomitant]
     Route: 048
     Dates: start: 20100323
  4. KEPPRA [Concomitant]
     Route: 065
     Dates: start: 20100315

REACTIONS (4)
  - HYPOKALAEMIA [None]
  - OEDEMA PERIPHERAL [None]
  - MUSCLE SPASMS [None]
  - INTESTINAL OBSTRUCTION [None]
